FAERS Safety Report 24764932 (Version 1)
Quarter: 2024Q4

REPORT INFORMATION
  Report Type: Spontaneous
  Country: CZ (occurrence: CZ)
  Receive Date: 20241223
  Receipt Date: 20241223
  Transmission Date: 20250114
  Serious: Yes (Hospitalization, Other)
  Sender: AMGEN
  Company Number: CZ-AMGEN-CZESP2024243696

PATIENT
  Age: 34 Year
  Sex: Female

DRUGS (8)
  1. XGEVA [Suspect]
     Active Substance: DENOSUMAB
     Indication: Carcinoid tumour pulmonary
     Dosage: 120 MILLIGRAM, Q4WK, ARM
     Route: 058
     Dates: start: 20140904
  2. SANDOSTATIN LAR DEPOT [Concomitant]
     Active Substance: OCTREOTIDE ACETATE
     Indication: Carcinoid tumour pulmonary
     Dosage: 30 MILLIGRAM, Q4WK
     Route: 030
     Dates: start: 20140904
  3. INTRON A [Concomitant]
     Active Substance: INTERFERON ALFA-2B
     Indication: Carcinoid tumour pulmonary
     Dosage: UNK UNK, 3 TIMES/WK, 5 MILLION INTERNATIONAL UNITS
     Route: 058
     Dates: start: 20140904
  4. SERETIDE [Concomitant]
     Active Substance: FLUTICASONE PROPIONATE\SALMETEROL XINAFOATE
     Dosage: 500 UNK
  5. LEVOTHYROXINE SODIUM [Concomitant]
     Active Substance: LEVOTHYROXINE SODIUM
     Dosage: 100 MILLIGRAM
  6. LANREOTIDE ACETATE [Concomitant]
     Active Substance: LANREOTIDE ACETATE
     Dosage: 120 MILLIGRAM, Q4WK
     Route: 030
     Dates: start: 201701
  7. LANREOTIDE ACETATE [Concomitant]
     Active Substance: LANREOTIDE ACETATE
     Dosage: 120 UNK
     Route: 030
     Dates: start: 20190622
  8. AFINITOR [Concomitant]
     Active Substance: EVEROLIMUS
     Dosage: 10 MILLIGRAM
     Dates: start: 201705, end: 201806

REACTIONS (11)
  - Pneumonia [Unknown]
  - Pancreatic disorder [Unknown]
  - Osteonecrosis of jaw [Unknown]
  - Hyperthyroidism [Unknown]
  - Neuroendocrine tumour of the lung metastatic [Recovering/Resolving]
  - Carcinoid syndrome [Unknown]
  - COVID-19 [Unknown]
  - Anaplastic lymphoma kinase gene mutation [Unknown]
  - Pancreatic enlargement [Unknown]
  - Therapy partial responder [Unknown]
  - Off label use [Unknown]

NARRATIVE: CASE EVENT DATE: 20140201
